FAERS Safety Report 8496119-9 (Version None)
Quarter: 2012Q2

REPORT INFORMATION
  Report Type: 
  Country: None (occurrence: None)
  Receive Date: 20120405
  Receipt Date: 20111121
  Transmission Date: 20120825
  Serious: Yes (Other)
  Sender: FDA-Public Use
  Company Number: PHEH2011US009922

PATIENT
  Age: 66 Year
  Sex: Male

DRUGS (5)
  1. ALLOPURINOL [Concomitant]
  2. IRON (IRON) [Concomitant]
  3. LOTREL [Suspect]
  4. PRILOSEC [Concomitant]
  5. LEVOTHYROXINE SODIUM [Concomitant]

REACTIONS (4)
  - HYPOTENSION [None]
  - WEIGHT DECREASED [None]
  - DIZZINESS [None]
  - FALL [None]
